FAERS Safety Report 7096874-9 (Version None)
Quarter: 2010Q4

REPORT INFORMATION
  Report Type: 
  Country: None (occurrence: None)
  Receive Date: 20101111
  Receipt Date: 20100201
  Transmission Date: 20110411
  Serious: No
  Sender: FDA-Public Use
  Company Number: US-KINGPHARMUSA00001-K201000132

PATIENT
  Age: 69 Year
  Sex: Female

DRUGS (2)
  1. FLECTOR [Suspect]
     Indication: OSTEOARTHRITIS
     Dosage: 1 PATCH BID
     Route: 061
  2. FLECTOR [Suspect]
     Indication: TENDONITIS

REACTIONS (3)
  - DISORIENTATION [None]
  - FEELING ABNORMAL [None]
  - NAUSEA [None]
